FAERS Safety Report 11690968 (Version 1)
Quarter: 2015Q4

REPORT INFORMATION
  Report Type: Spontaneous
  Country: JP (occurrence: JP)
  Receive Date: 20151102
  Receipt Date: 20151102
  Transmission Date: 20160304
  Serious: Yes (Hospitalization)
  Sender: FDA-Public Use
  Company Number: JP-AKORN PHARMACEUTICALS-2015AKN00625

PATIENT
  Age: 66 Year
  Sex: Female

DRUGS (6)
  1. ZIOPTAN [Suspect]
     Active Substance: TAFLUPROST
     Dosage: 2 GTT, QD
     Route: 047
     Dates: start: 20140314
  2. EDIROL [Concomitant]
     Active Substance: ELDECALCITOL
     Dosage: UNK CAPSULES, UNK
  3. TEARBALANCE [Concomitant]
     Active Substance: HYALURONATE SODIUM
     Dosage: UNK
     Route: 047
  4. RECALBON [Concomitant]
     Active Substance: MINODRONIC ACID
     Dosage: UNK TABLETS, UNK
  5. ZIOPTAN [Suspect]
     Active Substance: TAFLUPROST
     Indication: GLAUCOMA
     Dosage: 2 GTT, QD
     Route: 047
     Dates: start: 20140204, end: 20140310
  6. FUSACHOL [Concomitant]
     Dosage: UNK
     Route: 047

REACTIONS (1)
  - Goitre [Recovering/Resolving]

NARRATIVE: CASE EVENT DATE: 20140311
